FAERS Safety Report 18250401 (Version 1)
Quarter: 2020Q3

REPORT INFORMATION
  Report Type: Spontaneous
  Country: US (occurrence: US)
  Receive Date: 20200909
  Receipt Date: 20200909
  Transmission Date: 20201103
  Serious: Yes (Hospitalization)
  Sender: FDA-Public Use
  Company Number: US-NEXGEN PHARMA, INC.-2089557

PATIENT
  Age: 73 Year
  Sex: Male

DRUGS (1)
  1. CHENODAL [Suspect]
     Active Substance: CHENODIOL
     Indication: DYSLIPIDAEMIA
     Route: 048
     Dates: start: 20100608

REACTIONS (1)
  - Dyspnoea [Unknown]

NARRATIVE: CASE EVENT DATE: 20200825
